FAERS Safety Report 6410333-5 (Version None)
Quarter: 2009Q4

REPORT INFORMATION
  Report Type: 
  Country: None (occurrence: None)
  Receive Date: 20091022
  Receipt Date: 20091015
  Transmission Date: 20100525
  Serious: Yes (Other)
  Sender: FDA-Public Use
  Company Number: US-ROCHE-662915

PATIENT
  Age: 11 Year
  Sex: Female
  Weight: 45.8 kg

DRUGS (3)
  1. TAMIFLU [Suspect]
     Dosage: FREQUENCY: ONCE
     Route: 048
     Dates: start: 20091012
  2. ACETAMINOPHEN [Concomitant]
  3. MOTRIN [Concomitant]

REACTIONS (1)
  - HALLUCINATION [None]
